FAERS Safety Report 24323576 (Version 2)
Quarter: 2024Q3

REPORT INFORMATION
  Report Type: Spontaneous
  Country: ES (occurrence: ES)
  Receive Date: 20240916
  Receipt Date: 20240924
  Transmission Date: 20241017
  Serious: Yes (Other)
  Sender: PFIZER
  Company Number: ES-ROCHE-3567365

PATIENT
  Age: 55 Year
  Sex: Female
  Weight: 64.6 kg

DRUGS (13)
  1. TRASTUZUMAB [Suspect]
     Active Substance: TRASTUZUMAB
     Indication: Gastrooesophageal cancer
     Dosage: 511.2 MG, EVERY 3 WEEKS
     Route: 042
     Dates: start: 20230410, end: 20230410
  2. RUNIMOTAMAB [Suspect]
     Active Substance: RUNIMOTAMAB
     Indication: Gastrooesophageal cancer
     Dosage: 20 MG, EVERY 3 WEEKS
     Route: 042
     Dates: start: 20230411
  3. RUNIMOTAMAB [Suspect]
     Active Substance: RUNIMOTAMAB
     Dosage: DOSE CONCENTRATION 4 MG/ML, TOTAL VOLUME PRIOR AE 6.0 ML
     Route: 042
     Dates: start: 20230418, end: 20230418
  4. METAMIZOL 1A PHARMA [Concomitant]
     Indication: Pain
     Dosage: 575 MG, AS NEEDED
     Route: 048
     Dates: start: 2022
  5. ACETAMINOPHEN [Concomitant]
     Active Substance: ACETAMINOPHEN
     Indication: Pain
     Dosage: 1 G, SINGLE
     Route: 042
     Dates: start: 20230418, end: 20230418
  6. ACETAMINOPHEN [Concomitant]
     Active Substance: ACETAMINOPHEN
     Dosage: 1 G, SINGLE
     Route: 042
     Dates: start: 20230410, end: 20230410
  7. ACETAMINOPHEN [Concomitant]
     Active Substance: ACETAMINOPHEN
     Dosage: 1 G, SINGLE
     Route: 042
     Dates: start: 20230411, end: 20230411
  8. ACETAMINOPHEN [Concomitant]
     Active Substance: ACETAMINOPHEN
     Indication: Pain
     Dosage: 500 MG, AS NEEDED
     Route: 048
     Dates: start: 2022
  9. ENALAPRIL MALEATE [Concomitant]
     Active Substance: ENALAPRIL MALEATE
     Indication: Hypertension
     Dosage: 20 MG, DAILY
     Route: 048
     Dates: start: 2022
  10. DEXAMETHASONE [Concomitant]
     Active Substance: DEXAMETHASONE
     Dosage: 20 MG, SINGLE
     Route: 042
     Dates: start: 20230418, end: 20230418
  11. DEXAMETHASONE [Concomitant]
     Active Substance: DEXAMETHASONE
     Dosage: 20 MG, SINGLE
     Route: 042
     Dates: start: 20230411, end: 20230411
  12. FAMOTIDINE [Concomitant]
     Active Substance: FAMOTIDINE
     Dosage: 40 MG, DAILY
     Route: 048
     Dates: start: 2022
  13. POLYETHYLENE GLYCOLS [Concomitant]
     Active Substance: POLYETHYLENE GLYCOLS
     Indication: Constipation
     Dosage: 13.13 G, DAILY
     Route: 048
     Dates: start: 2022

REACTIONS (1)
  - Cytokine release syndrome [Recovered/Resolved]

NARRATIVE: CASE EVENT DATE: 20230419
